FAERS Safety Report 8270031-2 (Version None)
Quarter: 2012Q2

REPORT INFORMATION
  Report Type: 
  Country: None (occurrence: None)
  Receive Date: 20120410
  Receipt Date: 20120402
  Transmission Date: 20120825
  Serious: Yes (Other)
  Sender: FDA-Public Use
  Company Number: US-UCBSA-054600

PATIENT
  Age: 37 Year
  Sex: Female

DRUGS (1)
  1. CIMZIA [Suspect]
     Indication: RHEUMATOID ARTHRITIS
     Route: 058
     Dates: start: 20120331, end: 20120402

REACTIONS (4)
  - FEELING HOT [None]
  - LOSS OF CONSCIOUSNESS [None]
  - PALPITATIONS [None]
  - PHARYNGEAL OEDEMA [None]
